FAERS Safety Report 5199460-0 (Version None)
Quarter: 2006Q4

REPORT INFORMATION
  Report Type: 
  Country: None (occurrence: None)
  Receive Date: 20061229
  Receipt Date: 20061219
  Transmission Date: 20070319
  Serious: Yes (Death)
  Sender: FDA-Public Use
  Company Number: 2006SP008740

PATIENT
  Age: 69 Year
  Sex: Female

DRUGS (1)
  1. TEMODAR [Suspect]
     Indication: BRAIN NEOPLASM MALIGNANT
     Dosage: 145 MG, QD,PO
     Route: 048

REACTIONS (1)
  - DEATH [None]
